FAERS Safety Report 10196985 (Version 1)
Quarter: 2014Q2

REPORT INFORMATION
  Report Type: Spontaneous
  Country: DE (occurrence: DE)
  Receive Date: 20140527
  Receipt Date: 20140527
  Transmission Date: 20141212
  Serious: Yes (Congenital Anomaly, Other)
  Sender: FDA-Public Use
  Company Number: DE-TEVA-481422GER

PATIENT
  Age: 1 Day
  Sex: Female

DRUGS (6)
  1. VENLAFAXINE [Suspect]
     Route: 064
  2. ELONTRIL [Suspect]
     Route: 064
  3. PRILOCAINE [Suspect]
     Route: 064
  4. L-THYROXIN [Concomitant]
     Route: 064
  5. VOMEX A [Concomitant]
     Route: 064
  6. RHOPHYLAC [Concomitant]
     Route: 064

REACTIONS (8)
  - Neonatal respiratory distress syndrome [Recovered/Resolved]
  - Convulsion [Recovered/Resolved]
  - Neonatal asphyxia [Recovered/Resolved]
  - Feeding disorder neonatal [Recovered/Resolved]
  - Persistent foetal circulation [Recovered/Resolved]
  - Patent ductus arteriosus [Recovering/Resolving]
  - Atrial septal defect [Recovering/Resolving]
  - Drug withdrawal syndrome neonatal [Recovered/Resolved]
